FAERS Safety Report 21554472 (Version 20)
Quarter: 2025Q1

REPORT INFORMATION
  Report Type: Spontaneous
  Country: US (occurrence: US)
  Receive Date: 20221104
  Receipt Date: 20250127
  Transmission Date: 20250409
  Serious: Yes (Hospitalization)
  Sender: PFIZER
  Company Number: US-PFIZER INC-2020287970

PATIENT
  Age: 79 Year
  Sex: Male
  Weight: 68.027 kg

DRUGS (6)
  1. EUCRISA [Suspect]
     Active Substance: CRISABOROLE
     Indication: Psoriasis
     Dosage: 60G TUBE; APPLY TO AFFECTED AREA QD
     Route: 061
  2. EUCRISA [Suspect]
     Active Substance: CRISABOROLE
     Route: 061
  3. EUCRISA [Suspect]
     Active Substance: CRISABOROLE
     Dosage: APPLY TO AFFECTED AREA DAILY
     Route: 061
  4. EUCRISA [Suspect]
     Active Substance: CRISABOROLE
     Route: 061
  5. EUCRISA [Suspect]
     Active Substance: CRISABOROLE
     Route: 061
  6. EUCRISA [Suspect]
     Active Substance: CRISABOROLE
     Route: 061

REACTIONS (7)
  - Skin disorder [Unknown]
  - Rash [Not Recovered/Not Resolved]
  - Psoriasis [Unknown]
  - Eczema [Not Recovered/Not Resolved]
  - Nasopharyngitis [Unknown]
  - Condition aggravated [Not Recovered/Not Resolved]
  - Off label use [Unknown]
